FAERS Safety Report 25399578 (Version 1)
Quarter: 2025Q2

REPORT INFORMATION
  Report Type: Report from Study
  Country: US (occurrence: US)
  Receive Date: 20250605
  Receipt Date: 20250605
  Transmission Date: 20250716
  Serious: Yes (Other)
  Sender: NOVARTIS
  Company Number: US-002147023-NVSC2025US089241

PATIENT
  Sex: Male

DRUGS (1)
  1. ENTRESTO [Suspect]
     Active Substance: SACUBITRIL\VALSARTAN
     Indication: Product used for unknown indication
     Dosage: 24 MG OF SACUBITRIL AND 26 MG OF VALSARTAN, BID
     Route: 048

REACTIONS (4)
  - Cardiac failure chronic [Unknown]
  - Cardiac failure congestive [Unknown]
  - Asthenia [Unknown]
  - Pallor [Unknown]
